FAERS Safety Report 7816045-5 (Version None)
Quarter: 2011Q4

REPORT INFORMATION
  Report Type: 
  Country: None (occurrence: None)
  Receive Date: 20111015
  Receipt Date: 20111005
  Transmission Date: 20120403
  Serious: Yes (Hospitalization)
  Sender: FDA-Public Use
  Company Number: FR-ASTRAZENECA-2011SE60473

PATIENT
  Age: 29562 Day
  Sex: Female

DRUGS (6)
  1. AMOXICILLIN [Suspect]
     Route: 048
     Dates: start: 20110701, end: 20110810
  2. FLAGYL [Suspect]
     Route: 048
     Dates: start: 20110701, end: 20110810
  3. NEXIUM [Suspect]
     Route: 048
     Dates: start: 20110701, end: 20110810
  4. ESCITALOPRAM OXALATE [Suspect]
     Indication: DEMENTIA
     Route: 048
  5. CLARITHROMYCIN [Suspect]
     Route: 048
     Dates: start: 20110701, end: 20110810
  6. ARICEPT [Suspect]
     Indication: DEMENTIA
     Route: 048

REACTIONS (1)
  - CYTOLYTIC HEPATITIS [None]
